FAERS Safety Report 9411052 (Version 1)
Quarter: 2013Q3

REPORT INFORMATION
  Report Type: Spontaneous
  Country: US (occurrence: US)
  Receive Date: 20130719
  Receipt Date: 20130719
  Transmission Date: 20140515
  Serious: Yes (Hospitalization, Other)
  Sender: FDA-Public Use
  Company Number: US-ASTRAZENECA-2013SE53459

PATIENT
  Age: 47 Year
  Sex: Male

DRUGS (35)
  1. LISINOPRIL [Suspect]
     Route: 048
  2. LISINOPRIL [Suspect]
     Dosage: 10 DF OF 40 MG
     Route: 048
     Dates: start: 20121127, end: 20121127
  3. LOPRESSOR [Suspect]
     Route: 065
  4. LOPRESSOR [Suspect]
     Dosage: 10 DOSE FORM
     Route: 065
     Dates: start: 20121127, end: 20121127
  5. SAXAGLIPTIN [Suspect]
     Indication: TYPE 2 DIABETES MELLITUS
     Dosage: DAILY
     Route: 048
     Dates: start: 20110722, end: 20121206
  6. METFORMIN HCL (NON AZ DRUG) [Suspect]
     Indication: TYPE 2 DIABETES MELLITUS
     Dates: end: 20120321
  7. METFORMIN HCL (NON AZ DRUG) [Suspect]
     Indication: TYPE 2 DIABETES MELLITUS
     Dates: start: 20120321
  8. HUMALOG [Suspect]
     Indication: TYPE 2 DIABETES MELLITUS
     Route: 065
     Dates: end: 20120102
  9. HUMALOG [Suspect]
     Indication: TYPE 2 DIABETES MELLITUS
     Route: 065
     Dates: start: 20120102, end: 20120515
  10. HUMALOG [Suspect]
     Indication: TYPE 2 DIABETES MELLITUS
     Route: 065
     Dates: start: 20120515, end: 20121128
  11. HUMALOG [Suspect]
     Indication: TYPE 2 DIABETES MELLITUS
     Route: 065
     Dates: start: 20121128
  12. LANTUS [Suspect]
     Indication: TYPE 2 DIABETES MELLITUS
     Dates: start: 20111231
  13. LANTUS [Suspect]
     Indication: TYPE 2 DIABETES MELLITUS
     Dates: start: 20120102
  14. LANTUS [Suspect]
     Indication: TYPE 2 DIABETES MELLITUS
     Dates: start: 20120102, end: 20120321
  15. LANTUS [Suspect]
     Indication: TYPE 2 DIABETES MELLITUS
     Dates: start: 20120321, end: 20121128
  16. LANTUS [Suspect]
     Indication: TYPE 2 DIABETES MELLITUS
     Dates: start: 20120321, end: 20121128
  17. LANTUS [Suspect]
     Indication: TYPE 2 DIABETES MELLITUS
     Dates: start: 20121128
  18. NOVOLOG [Suspect]
     Indication: TYPE 2 DIABETES MELLITUS
     Dosage: 1DF OF 285 UNITS
     Dates: start: 20111231
  19. PERCOCET (NON AZ DRUG) [Suspect]
     Dosage: 1 DF: OF 325 MG
     Dates: start: 20121127, end: 20121127
  20. XANAX [Suspect]
  21. XANAX [Suspect]
     Dosage: 10 DF OF 0.5 MG
     Dates: start: 20121127, end: 20121127
  22. OXYCONTIN [Suspect]
     Dates: start: 20111231
  23. OXYCONTIN [Suspect]
     Dosage: 10 OF 40 MG
     Dates: start: 20121127, end: 20121127
  24. NEURONTIN [Suspect]
  25. NEURONTIN [Suspect]
     Dosage: 10 DF OF 300 MG
     Dates: start: 20121127, end: 20121127
  26. NORCO (NON AZ DRUG) [Suspect]
  27. SIMVASTATIN [Suspect]
  28. SIMVASTATIN [Suspect]
     Dosage: 10 DF OF 80 MG
     Dates: start: 20121127, end: 20121127
  29. NORVASC [Suspect]
  30. NORVASC [Suspect]
     Dosage: 10 DF OF 10 MG
     Dates: start: 20121127, end: 20121127
  31. HYDRALAZINE [Suspect]
  32. HYDRALAZINE [Suspect]
     Dosage: 10 DF 100 MG
     Dates: start: 20121127, end: 20121127
  33. PROTONIX [Suspect]
  34. PROTONIX [Suspect]
     Dosage: 10 DF OF 40 MG
     Dates: start: 20121127, end: 20121127
  35. ASPIRIN [Concomitant]
     Dosage: 1DF ={ 100 MG

REACTIONS (3)
  - Intentional overdose [Recovered/Resolved]
  - Depression [Not Recovered/Not Resolved]
  - Pain [Not Recovered/Not Resolved]
